FAERS Safety Report 6526177 (Version 3)
Quarter: 2013Q1

REPORT INFORMATION
  Report Type: Spontaneous
  Country: US (occurrence: US)
  Receive Date: 20080114
  Receipt Date: 20130201
  Transmission Date: 20140127
  Serious: Yes (Other)
  Sender: FDA-Public Use
  Company Number: US-ELI_LILLY_AND_COMPANY-US_980504052

PATIENT
  Age: 15 Year
  Sex: Male

DRUGS (2)
  1. PROZAC [Suspect]
     Dosage: UNK, UNKNOWN
     Dates: end: 199710
  2. RITALIN [Concomitant]
     Dosage: UNK, UNKNOWN

REACTIONS (3)
  - Physical assault [Unknown]
  - Homicide [Unknown]
  - Withdrawal syndrome [Unknown]
